FAERS Safety Report 6233447-1 (Version None)
Quarter: 2009Q2

REPORT INFORMATION
  Report Type: 
  Country: None (occurrence: None)
  Receive Date: 20090617
  Receipt Date: 20090605
  Transmission Date: 20091009
  Serious: Yes (Hospitalization)
  Sender: FDA-Public Use
  Company Number: FR-ELI_LILLY_AND_COMPANY-FR200902002747

PATIENT
  Sex: Female
  Weight: 41 kg

DRUGS (1)
  1. FORTEO [Suspect]
     Indication: OSTEOPOROSIS
     Dosage: 20 UG, DAILY (1/D)
     Route: 058
     Dates: start: 20071127

REACTIONS (9)
  - ANAEMIA [None]
  - ANXIETY [None]
  - ASTHENIA [None]
  - BRADYPHRENIA [None]
  - CONFUSIONAL STATE [None]
  - KYPHOSIS [None]
  - NECK PAIN [None]
  - PHOTOPHOBIA [None]
  - PNEUMONIA [None]
